FAERS Safety Report 8784332 (Version 8)
Quarter: 2017Q2

REPORT INFORMATION
  Report Type: Spontaneous
  Country: US (occurrence: US)
  Receive Date: 20120913
  Receipt Date: 20170510
  Transmission Date: 20170830
  Serious: Yes (Hospitalization, Disabling, Other)
  Sender: FDA-Public Use
  Company Number: US-009507513-1209USA001618

PATIENT
  Sex: Female
  Weight: 63.49 kg

DRUGS (4)
  1. FOSAMAX [Suspect]
     Active Substance: ALENDRONATE SODIUM
     Indication: OSTEOPENIA
     Dosage: 70 MG, QW
     Route: 048
     Dates: start: 20020709, end: 2007
  2. FOSAMAX [Suspect]
     Active Substance: ALENDRONATE SODIUM
     Indication: OSTEOPOROSIS
  3. OMEGA-3 MARINE TRIGLYCERIDES [Concomitant]
     Active Substance: FISH OIL
     Dosage: 2400 MG, UNK
     Dates: start: 2002
  4. OSCAL [Concomitant]
     Active Substance: CALCIUM CARBONATE
     Dosage: UNK, TID
     Route: 048
     Dates: start: 1987, end: 2007

REACTIONS (35)
  - Ligament rupture [Unknown]
  - Drug ineffective [Unknown]
  - Femur fracture [Not Recovered/Not Resolved]
  - Spinal fusion surgery [Unknown]
  - Rib fracture [Recovering/Resolving]
  - Vertebroplasty [Unknown]
  - Osteoarthritis [Unknown]
  - Fall [Unknown]
  - Endodontic procedure [Unknown]
  - Fracture malunion [Unknown]
  - Arthralgia [Not Recovered/Not Resolved]
  - Hip arthroplasty [Unknown]
  - Rib fracture [Unknown]
  - Tooth extraction [Unknown]
  - Spinal compression fracture [Not Recovered/Not Resolved]
  - Nephrolithiasis [Unknown]
  - Low turnover osteopathy [Not Recovered/Not Resolved]
  - Cataract operation [Unknown]
  - Tendon disorder [Unknown]
  - Device dislocation [Not Recovered/Not Resolved]
  - Open reduction of fracture [Unknown]
  - Back injury [Not Recovered/Not Resolved]
  - Intraocular lens implant [Unknown]
  - Kyphosis [Unknown]
  - Bone fragmentation [Unknown]
  - Bone fragmentation [Unknown]
  - Spinal disorder [Unknown]
  - Sinus headache [Not Recovered/Not Resolved]
  - Pollakiuria [Unknown]
  - Spinal compression fracture [Unknown]
  - Glaucoma [Unknown]
  - Headache [Unknown]
  - Hip arthroplasty [Unknown]
  - Hypertension [Unknown]
  - Drug ineffective [Unknown]

NARRATIVE: CASE EVENT DATE: 200208
